FAERS Safety Report 9363320 (Version 1)
Quarter: 2013Q2

REPORT INFORMATION
  Report Type: Spontaneous
  Country: US (occurrence: None)
  Receive Date: 20130621
  Receipt Date: 20130621
  Transmission Date: 20140414
  Serious: No
  Sender: FDA-Public Use
  Company Number: None

PATIENT
  Age: 41 Year
  Sex: Female

DRUGS (9)
  1. ENBREL [Suspect]
     Indication: RHEUMATOID ARTHRITIS
     Dates: start: 201302
  2. PREDNISONE [Concomitant]
  3. METHOTREXATE [Concomitant]
  4. PERCOCET [Concomitant]
  5. LIDOCAINE PATCH [Concomitant]
  6. IMITREX [Concomitant]
  7. TORADOL [Concomitant]
  8. FOLIC ACID [Concomitant]
  9. OMEPRAZOLE [Concomitant]

REACTIONS (1)
  - Erythema [None]
